FAERS Safety Report 5197123-9 (Version None)
Quarter: 2007Q1

REPORT INFORMATION
  Report Type: 
  Country: None (occurrence: None)
  Receive Date: 20070103
  Receipt Date: 20070102
  Transmission Date: 20070707
  Serious: Yes (Hospitalization, Other)
  Sender: FDA-Public Use
  Company Number: US-GLAXOSMITHKLINE-A0623085A

PATIENT
  Age: 16 Year
  Sex: Male
  Weight: 63.6 kg

DRUGS (2)
  1. LAMICTAL [Suspect]
     Indication: EPILEPSY
     Dosage: 25MG PER DAY
     Route: 048
     Dates: start: 20060901
  2. DEPAKOTE [Concomitant]
     Dosage: 25MG ALTERNATE DAYS

REACTIONS (3)
  - ERYTHEMA [None]
  - RASH [None]
  - THERAPY REGIMEN CHANGED [None]
